FAERS Safety Report 9156094 (Version 1)
Quarter: 2013Q1

REPORT INFORMATION
  Report Type: Spontaneous
  Country: US (occurrence: US)
  Receive Date: 20130311
  Receipt Date: 20130311
  Transmission Date: 20140127
  Serious: No
  Sender: FDA-Public Use
  Company Number: US-009507513-1303USA002641

PATIENT
  Sex: Female
  Weight: 111.11 kg

DRUGS (2)
  1. IMPLANON [Suspect]
     Indication: CONTRACEPTION
     Dosage: 1 DF, UNK
     Route: 059
     Dates: start: 201204
  2. PROZAC [Concomitant]

REACTIONS (3)
  - Pneumonia [Recovered/Resolved]
  - Medical device complication [Unknown]
  - Pain in extremity [Unknown]
